FAERS Safety Report 6329176-6 (Version None)
Quarter: 2009Q3

REPORT INFORMATION
  Report Type: 
  Country: None (occurrence: None)
  Receive Date: 20090826
  Receipt Date: 20090821
  Transmission Date: 20100115
  Serious: Yes (Hospitalization)
  Sender: FDA-Public Use
  Company Number: FR-ROCHE-651951

PATIENT
  Sex: Female

DRUGS (4)
  1. ROCEPHIN [Suspect]
     Route: 042
     Dates: start: 20090513, end: 20090515
  2. ZITHROMAX [Suspect]
     Indication: CAMPYLOBACTER INFECTION
     Route: 065
     Dates: start: 20090517, end: 20090519
  3. EXJADE [Suspect]
     Indication: DRUG USE FOR UNKNOWN INDICATION
     Route: 048
     Dates: start: 20090427
  4. HYDREA [Suspect]
     Indication: DRUG USE FOR UNKNOWN INDICATION
     Route: 048
     Dates: start: 20090427

REACTIONS (5)
  - CYTOLYTIC HEPATITIS [None]
  - HEPATOMEGALY [None]
  - JAUNDICE CHOLESTATIC [None]
  - PANCREATITIS [None]
  - PYREXIA [None]
